FAERS Safety Report 24161602 (Version 1)
Quarter: 2024Q3

REPORT INFORMATION
  Report Type: Spontaneous
  Country: CN (occurrence: CN)
  Receive Date: 20240801
  Receipt Date: 20240801
  Transmission Date: 20241016
  Serious: Yes (Other)
  Sender: ROCHE
  Company Number: CN-ROCHE-10000037861

PATIENT
  Age: 48 Year
  Sex: Female
  Weight: 68.5 kg

DRUGS (4)
  1. PERTUZUMAB [Suspect]
     Active Substance: PERTUZUMAB
     Indication: Breast cancer
     Dosage: THE REMAINING INDICATION FOR MEDICATION IN THE SOURCE WERE CONSIDERED AS CONCOMITANT DISEASES
     Route: 042
     Dates: start: 20240606, end: 20240606
  2. TRASTUZUMAB [Suspect]
     Active Substance: TRASTUZUMAB
     Indication: Breast cancer
     Dosage: THE REMAINING INDICATION FOR MEDICATION IN THE SOURCE WERE CONSIDERED AS CONCOMITANT DISEASES
     Route: 042
     Dates: start: 20240606, end: 20240606
  3. PACLITAXEL [Suspect]
     Active Substance: PACLITAXEL
     Indication: Breast cancer
     Dosage: THE REMAINING INDICATION FOR MEDICATION IN THE SOURCE WERE CONSIDERED AS CONCOMITANT DISEASES
     Route: 042
     Dates: start: 20240606, end: 20240606
  4. CARBOPLATIN [Suspect]
     Active Substance: CARBOPLATIN
     Indication: Breast cancer
     Dosage: THE REMAINING INDICATION FOR MEDICATION IN THE SOURCE WERE CONSIDERED AS CONCOMITANT DISEASES
     Route: 042
     Dates: start: 20240606, end: 20240606

REACTIONS (1)
  - Myelosuppression [Recovering/Resolving]

NARRATIVE: CASE EVENT DATE: 20240609
